FAERS Safety Report 8470147-1 (Version None)
Quarter: 2012Q2

REPORT INFORMATION
  Report Type: 
  Country: None (occurrence: None)
  Receive Date: 20120627
  Receipt Date: 20120618
  Transmission Date: 20120825
  Serious: Yes (Death)
  Sender: FDA-Public Use
  Company Number: IT-BRISTOL-MYERS SQUIBB COMPANY-16705790

PATIENT

DRUGS (1)
  1. ERBITUX [Suspect]
     Indication: RECTAL CANCER

REACTIONS (2)
  - NEUTROPENIA [None]
  - RENAL FAILURE ACUTE [None]
